FAERS Safety Report 16328701 (Version 2)
Quarter: 2019Q2

REPORT INFORMATION
  Report Type: Spontaneous
  Country: US (occurrence: US)
  Receive Date: 20190519
  Receipt Date: 20190521
  Transmission Date: 20190711
  Serious: Yes (Hospitalization)
  Sender: FDA-Public Use
  Company Number: US-JNJFOC-20190520587

PATIENT

DRUGS (2)
  1. ACETAMINOPHEN. [Suspect]
     Active Substance: ACETAMINOPHEN
     Route: 065
  2. ACETAMINOPHEN. [Suspect]
     Active Substance: ACETAMINOPHEN
     Indication: PRODUCT USED FOR UNKNOWN INDICATION
     Route: 065

REACTIONS (5)
  - Blood phosphorus increased [Unknown]
  - Blood creatinine increased [Unknown]
  - Blood lactic acid increased [Unknown]
  - Acute hepatic failure [Unknown]
  - Platelet count decreased [Unknown]
